FAERS Safety Report 7285507-4 (Version None)
Quarter: 2011Q1

REPORT INFORMATION
  Report Type: 
  Country: None (occurrence: None)
  Receive Date: 20110210
  Receipt Date: 20110205
  Transmission Date: 20110831
  Serious: Yes (Other)
  Sender: FDA-Public Use
  Company Number: US-PFIZER INC-2011026351

PATIENT
  Sex: Male

DRUGS (2)
  1. CELEBREX [Suspect]
     Indication: TORTICOLLIS
     Dosage: UNK
     Dates: start: 20110131
  2. CELEBREX [Suspect]
     Indication: ARTHRALGIA

REACTIONS (10)
  - MUSCULOSKELETAL DISCOMFORT [None]
  - MUSCLE CONTRACTURE [None]
  - DIZZINESS [None]
  - CONVULSION [None]
  - PAIN IN EXTREMITY [None]
  - TREMOR [None]
  - HEARING IMPAIRED [None]
  - MUSCLE TWITCHING [None]
  - EYELID DISORDER [None]
  - ARTHRALGIA [None]
